FAERS Safety Report 10182692 (Version 1)
Quarter: 2014Q2

REPORT INFORMATION
  Report Type: Spontaneous
  Country: US (occurrence: None)
  Receive Date: 20140519
  Receipt Date: 20140519
  Transmission Date: 20141212
  Serious: No
  Sender: FDA-Public Use
  Company Number: None

PATIENT
  Age: 61 Year
  Sex: Female
  Weight: 79.38 kg

DRUGS (1)
  1. CRESTOR 20 MG ASTRAZENECA [Suspect]
     Indication: BLOOD CHOLESTEROL INCREASED
     Dosage: 1 PILL, ONCE DAILY, TAKEN BY MOUTH

REACTIONS (1)
  - Neuropathy peripheral [None]
